FAERS Safety Report 8418147-1 (Version None)
Quarter: 2012Q2

REPORT INFORMATION
  Report Type: 
  Country: None (occurrence: None)
  Receive Date: 20120607
  Receipt Date: 20120530
  Transmission Date: 20120825
  Serious: Yes (Death, Hospitalization)
  Sender: FDA-Public Use
  Company Number: US-BAYER-2011-093439

PATIENT
  Age: 36 Year
  Sex: Female
  Weight: 90.703 kg

DRUGS (13)
  1. TYLENOL ARTHRITIS [Concomitant]
  2. EPINEPHRINE [Concomitant]
     Route: 042
  3. BENADRYL [Concomitant]
  4. IBUPROFEN [Concomitant]
  5. BICARBONAT [Concomitant]
  6. ANCEF [Concomitant]
  7. DROSPIRENONE AND ETHINYL ESTRADIOL [Suspect]
     Indication: UTERINE HAEMORRHAGE
     Dosage: UNK
     Dates: start: 20090526, end: 20090920
  8. ATROPINE [Concomitant]
  9. NARCAN [Concomitant]
  10. APAP W/ CODEINE [Concomitant]
     Dosage: 300-30 MG TAB,UNK
  11. MOTRIN [Concomitant]
     Dosage: UNK
  12. DEPODUR [Concomitant]
  13. DOPAMINE HCL [Concomitant]
     Dosage: 10, 7.5, 5 MCG/KG/MIN

REACTIONS (5)
  - PULMONARY EMBOLISM [None]
  - DEEP VEIN THROMBOSIS [None]
  - CARDIO-RESPIRATORY ARREST [None]
  - HYPOXIC-ISCHAEMIC ENCEPHALOPATHY [None]
  - INJURY [None]
